FAERS Safety Report 8573928-9 (Version None)
Quarter: 2012Q2

REPORT INFORMATION
  Report Type: 
  Country: None (occurrence: None)
  Receive Date: 20120423
  Receipt Date: 20090922
  Transmission Date: 20120825
  Serious: Yes (Other)
  Sender: FDA-Public Use
  Company Number: PHEH2009US11523

PATIENT
  Age: 65 Year
  Sex: Female

DRUGS (1)
  1. EXJADE [Suspect]
     Indication: IRON OVERLOAD
     Dosage: 1250 MG DAILY, ORAL
     Route: 048
     Dates: start: 20090609, end: 20090723

REACTIONS (4)
  - NAUSEA [None]
  - RENAL DISORDER [None]
  - BLOOD CREATININE INCREASED [None]
  - DIARRHOEA [None]
